FAERS Safety Report 4322057-9 (Version None)
Quarter: 2004Q1

REPORT INFORMATION
  Report Type: 
  Country: None (occurrence: None)
  Receive Date: 20040319
  Receipt Date: 20040305
  Transmission Date: 20041129
  Serious: Yes (Death)
  Sender: FDA-Public Use
  Company Number: 2004-DE-01084GD (0)

PATIENT
  Sex: 0

DRUGS (3)
  1. METHOTREXATE [Suspect]
     Indication: LUPUS NEPHRITIS
  2. CORTICOSTEROIDS (CORTICOSTEROIDS) [Suspect]
     Indication: LUPUS NEPHRITIS
     Dosage: SEE TEXT, PO
     Route: 048
  3. NOT REPORTED (PREDNISONE) [Concomitant]

REACTIONS (2)
  - ACUTE RESPIRATORY DISTRESS SYNDROME [None]
  - PNEUMOCYSTIS CARINII PNEUMONIA [None]
